FAERS Safety Report 10144279 (Version 2)
Quarter: 2014Q2

REPORT INFORMATION
  Report Type: Spontaneous
  Country: DE (occurrence: DE)
  Receive Date: 20140430
  Receipt Date: 20140620
  Transmission Date: 20141212
  Serious: Yes (Hospitalization)
  Sender: FDA-Public Use
  Company Number: DE-WATSON-2014-08511

PATIENT
  Age: 37 Year
  Sex: Male

DRUGS (3)
  1. CIPROFLOXACIN HYDROCHLORIDE (UNKNOWN) [Suspect]
     Indication: HELICOBACTER INFECTION
     Dosage: 1000 MG, DAILY
     Route: 065
     Dates: start: 20140207, end: 20140217
  2. ATENOLOL [Concomitant]
     Indication: COARCTATION OF THE AORTA
     Dosage: 50 MG, DAILY
     Route: 048
  3. HYPERICUM EXTRACT [Concomitant]
     Indication: PRODUCT USED FOR UNKNOWN INDICATION
     Dosage: 1 DF, DAILY
     Route: 048
     Dates: start: 20140404

REACTIONS (1)
  - Tendon rupture [Not Recovered/Not Resolved]
